FAERS Safety Report 5392302-X (Version None)
Quarter: 2007Q3

REPORT INFORMATION
  Report Type: 
  Country: None (occurrence: None)
  Receive Date: 20070720
  Receipt Date: 20070710
  Transmission Date: 20080115
  Serious: Yes (Other)
  Sender: FDA-Public Use
  Company Number: JP-ROCHE-502293

PATIENT
  Age: 68 Year
  Sex: Male
  Weight: 100 kg

DRUGS (4)
  1. VESANOID [Suspect]
     Indication: ACUTE PROMYELOCYTIC LEUKAEMIA
     Route: 048
     Dates: start: 20070526, end: 20070531
  2. IDAMYCIN [Concomitant]
     Dates: start: 20070526, end: 20070527
  3. FOY [Concomitant]
     Dates: start: 20070526, end: 20070531
  4. CYLOCIDE [Concomitant]
     Dates: start: 20070526, end: 20070530

REACTIONS (3)
  - CARDIAC FAILURE [None]
  - INTERSTITIAL LUNG DISEASE [None]
  - RESPIRATORY FAILURE [None]
